FAERS Safety Report 18125635 (Version 2)
Quarter: 2020Q3

REPORT INFORMATION
  Report Type: Report from Study
  Country: TW (occurrence: TW)
  Receive Date: 20200807
  Receipt Date: 20200818
  Transmission Date: 20201103
  Serious: Yes (Hospitalization)
  Sender: FDA-Public Use
  Company Number: TW-TAKEDA-2019TUS060046

PATIENT
  Age: 31 Year
  Sex: Male

DRUGS (1)
  1. VEDOLIZUMAB [Suspect]
     Active Substance: VEDOLIZUMAB
     Indication: COLITIS ULCERATIVE
     Dosage: 300 MILLIGRAM
     Route: 042
     Dates: start: 20180816

REACTIONS (3)
  - Gastroenteritis [Not Recovered/Not Resolved]
  - Urethritis noninfective [Not Recovered/Not Resolved]
  - Pain [Not Recovered/Not Resolved]
